FAERS Safety Report 5843127-X (Version None)
Quarter: 2008Q3

REPORT INFORMATION
  Report Type: 
  Country: None (occurrence: None)
  Receive Date: 20080813
  Receipt Date: 20080806
  Transmission Date: 20090109
  Serious: Yes (Other)
  Sender: FDA-Public Use
  Company Number: US-BAYER-200823590NA

PATIENT
  Age: 29 Year
  Sex: Female
  Weight: 82 kg

DRUGS (1)
  1. MIRENA [Suspect]
     Indication: CONTRACEPTION
     Route: 015
     Dates: start: 20030613, end: 20080424

REACTIONS (6)
  - AMENORRHOEA [None]
  - COMPLICATION OF DEVICE REMOVAL [None]
  - GENITAL HAEMORRHAGE [None]
  - IUCD COMPLICATION [None]
  - IUD MIGRATION [None]
  - PROCEDURAL PAIN [None]
